FAERS Safety Report 26032188 (Version 1)
Quarter: 2025Q4

REPORT INFORMATION
  Report Type: Report from Study
  Country: US (occurrence: US)
  Receive Date: 20251112
  Receipt Date: 20251112
  Transmission Date: 20260117
  Serious: No
  Sender: AVERITAS
  Company Number: US-GRUNENTHAL-2025-124495

PATIENT
  Age: 66 Year
  Sex: Male

DRUGS (1)
  1. QUTENZA [Suspect]
     Active Substance: CAPSAICIN
     Indication: Product used for unknown indication
     Dosage: UNK, ONCE
     Route: 003
     Dates: start: 20250910, end: 20250910

REACTIONS (2)
  - Pain in extremity [Not Recovered/Not Resolved]
  - Pruritus [Not Recovered/Not Resolved]
